FAERS Safety Report 8985925 (Version 1)
Quarter: 2012Q4

REPORT INFORMATION
  Report Type: 
  Country: US (occurrence: US)
  Receive Date: 20121226
  Receipt Date: 20121226
  Transmission Date: 20130627
  Serious: Yes (Life-Threatening, Hospitalization, Other)
  Sender: FDA-Public Use
  Company Number: US-BAYER-2012-132668

PATIENT
  Age: 64 Year
  Sex: Male

DRUGS (3)
  1. BETAPACE [Suspect]
     Indication: ATRIAL FIBRILLATION
     Dosage: 80 mg, BID
  2. ADDERALL [Suspect]
     Dosage: UNK
  3. METHADONE [Suspect]
     Indication: PAIN NOS
     Dosage: UNK

REACTIONS (12)
  - Extrasystoles [None]
  - Heart rate increased [None]
  - Loss of consciousness [None]
  - Cyanosis [None]
  - Atrial fibrillation [None]
  - Ventricular fibrillation [None]
  - Implantable defibrillator insertion [None]
  - Nervousness [None]
  - Fatigue [None]
  - Malaise [None]
  - Contusion [None]
  - Drug ineffective [None]
